FAERS Safety Report 9931327 (Version 4)
Quarter: 2014Q2

REPORT INFORMATION
  Report Type: Report from Study
  Country: US (occurrence: US)
  Receive Date: 20140228
  Receipt Date: 20140405
  Transmission Date: 20141212
  Serious: Yes (Hospitalization, Other)
  Sender: FDA-Public Use
  Company Number: US-JNJFOC-20130813672

PATIENT
  Age: 68 Year
  Sex: Male
  Weight: 85.26 kg

DRUGS (18)
  1. IBUPROFEN [Suspect]
     Route: 048
  2. IBUPROFEN [Suspect]
     Indication: OSTEOARTHRITIS
     Route: 048
     Dates: start: 20130215, end: 20130707
  3. HYDROCODONE W/PARACETAMOL [Concomitant]
     Indication: PAIN
     Dosage: 1 DF  7.5/325MG AS NEEDED
     Route: 048
     Dates: start: 20140210
  4. FUROSEMIDE [Concomitant]
     Indication: DIURETIC THERAPY
     Route: 048
     Dates: start: 20140210
  5. CLOPIDOGREL [Concomitant]
     Indication: MYOCARDIAL INFARCTION
     Route: 048
     Dates: start: 20070117, end: 20130815
  6. ASPIRIN [Concomitant]
     Indication: ANTICOAGULANT THERAPY
     Route: 048
     Dates: start: 20091204
  7. SIMVASTATIN [Concomitant]
     Indication: BLOOD CHOLESTEROL DECREASED
     Route: 048
     Dates: start: 20070117
  8. UNIVASC [Concomitant]
     Indication: HYPERTENSION
     Route: 048
     Dates: start: 20070117, end: 20140210
  9. HYDROCHLOROTHIAZIDE [Concomitant]
     Indication: HYPERTENSION
     Route: 048
  10. HYDROCHLOROTHIAZIDE [Concomitant]
     Indication: HYPERTENSION
     Route: 048
     Dates: start: 20070117
  11. HYDROCHLOROTHIAZIDE [Concomitant]
     Indication: DIURETIC THERAPY
     Route: 048
  12. HYDROCHLOROTHIAZIDE [Concomitant]
     Indication: DIURETIC THERAPY
     Route: 048
     Dates: start: 20070117
  13. METOPROLOL TARTRATE [Concomitant]
     Indication: HYPERTENSION
     Route: 048
     Dates: start: 20070117
  14. TRAMADOL HCL [Concomitant]
     Indication: ARTHRALGIA
     Dosage: AS NECESSARY
     Route: 048
     Dates: start: 20130710
  15. TRAMADOL HCL [Concomitant]
     Indication: PAIN
     Dosage: AS NECESSARY
     Route: 048
     Dates: start: 20130710
  16. OMEPRAZOLE [Concomitant]
     Indication: PROPHYLAXIS
     Route: 048
     Dates: start: 20130710
  17. NEXIUM [Concomitant]
     Indication: PROPHYLAXIS
     Route: 048
     Dates: start: 20130215, end: 20130707
  18. ISOSORBIDE MONONITRATE [Concomitant]
     Indication: NITRATE COMPOUND THERAPY
     Route: 048
     Dates: start: 20070117, end: 20140210

REACTIONS (3)
  - Oesophageal carcinoma [Recovered/Resolved with Sequelae]
  - Nodule [Not Recovered/Not Resolved]
  - Delirium tremens [Recovered/Resolved]
